FAERS Safety Report 21771602 (Version 1)
Quarter: 2022Q4

REPORT INFORMATION
  Report Type: Spontaneous
  Country: NL (occurrence: NL)
  Receive Date: 20221223
  Receipt Date: 20221223
  Transmission Date: 20230112
  Serious: Yes (Hospitalization)
  Sender: FDA-Public Use
  Company Number: None

PATIENT
  Sex: Female
  Weight: 59 kg

DRUGS (3)
  1. CIPROFLOXACIN [Suspect]
     Active Substance: CIPROFLOXACIN
     Indication: Infection prophylaxis
     Dosage: 2X PER DAG 10 ML
     Dates: start: 20221123, end: 20221127
  2. CIPROFLOXACIN [Suspect]
     Active Substance: CIPROFLOXACIN
     Indication: Antibiotic prophylaxis
  3. DOXORUBICIN [Concomitant]
     Active Substance: DOXORUBICIN

REACTIONS (5)
  - Dyskinesia [Recovered/Resolved]
  - Anxiety [Recovered/Resolved]
  - Screaming [Recovered/Resolved]
  - Crying [Recovered/Resolved]
  - Dyskinesia [Recovered/Resolved]
